FAERS Safety Report 6165752-1 (Version None)
Quarter: 2009Q2

REPORT INFORMATION
  Report Type: 
  Country: None (occurrence: None)
  Receive Date: 20090423
  Receipt Date: 20090415
  Transmission Date: 20091009
  Serious: Yes (Hospitalization, Congenital Anomaly)
  Sender: FDA-Public Use
  Company Number: ZA-ABBOTT-08P-143-0478619-00

PATIENT
  Sex: Female
  Weight: 3.7 kg

DRUGS (6)
  1. RITONAVIR SOFT GELATIN CAPSULES [Suspect]
     Indication: HIV INFECTION
     Route: 064
     Dates: start: 20080425, end: 20080725
  2. COMBIVIR [Concomitant]
     Indication: DRUG USE FOR UNKNOWN INDICATION
     Dosage: 300/600 MG
     Route: 064
     Dates: start: 20080425, end: 20080725
  3. ATAZANAVIR SULFATE [Concomitant]
     Indication: DRUG USE FOR UNKNOWN INDICATION
     Route: 064
     Dates: start: 20080425, end: 20080626
  4. ATAZANAVIR SULFATE [Concomitant]
     Route: 064
     Dates: start: 20080627, end: 20080725
  5. ZIDOVUDINE [Concomitant]
     Indication: HIV INFECTION
     Route: 064
     Dates: start: 20080725, end: 20080731
  6. ZIDOVUDINE [Concomitant]
     Route: 048
     Dates: start: 20080801, end: 20080904

REACTIONS (2)
  - ATRIAL SEPTAL DEFECT [None]
  - PREMATURE BABY [None]
